FAERS Safety Report 12847368 (Version 1)
Quarter: 2016Q4

REPORT INFORMATION
  Report Type: Spontaneous
  Country: US (occurrence: US)
  Receive Date: 20161014
  Receipt Date: 20161014
  Transmission Date: 20170207
  Serious: Yes (Life-Threatening)
  Sender: FDA-Public Use
  Company Number: None

PATIENT
  Age: 42 Year
  Sex: Female
  Weight: 148 kg

DRUGS (2)
  1. VALSARTAN AND HYDROCHLOROTHIAZIDE [Concomitant]
     Active Substance: HYDROCHLOROTHIAZIDE\VALSARTAN
  2. LISINOPRIL-HCTZ 20/12.5T [Suspect]
     Active Substance: HYDROCHLOROTHIAZIDE\LISINOPRIL
     Indication: HYPERTENSION
     Dosage: 20/12.5 T  ONE TABLET BY MOUTH  ONDE DAILY
     Route: 048
     Dates: start: 20160505, end: 20160521

REACTIONS (1)
  - Lip swelling [None]

NARRATIVE: CASE EVENT DATE: 20160520
